FAERS Safety Report 7283225-X (Version None)
Quarter: 2011Q1

REPORT INFORMATION
  Report Type: 
  Country: None (occurrence: None)
  Receive Date: 20110209
  Receipt Date: 20110127
  Transmission Date: 20110831
  Serious: Yes (Other)
  Sender: FDA-Public Use
  Company Number: PHFR2011GB00775

PATIENT
  Sex: Male

DRUGS (2)
  1. CLOZARIL [Suspect]
     Indication: SCHIZOPHRENIA
     Dosage: UNK
     Route: 048
     Dates: start: 20110112, end: 20110125
  2. CLOZARIL [Suspect]
     Route: 048
     Dates: start: 20110112, end: 20110125

REACTIONS (9)
  - INFLUENZA [None]
  - BLOOD GLUCOSE INCREASED [None]
  - BODY TEMPERATURE INCREASED [None]
  - OROPHARYNGEAL PAIN [None]
  - PAIN [None]
  - WHITE BLOOD CELL COUNT INCREASED [None]
  - NEUTROPHIL COUNT INCREASED [None]
  - BLOOD PRESSURE INCREASED [None]
  - TACHYCARDIA [None]
